FAERS Safety Report 10246970 (Version 1)
Quarter: 2014Q1

REPORT INFORMATION
  Report Type: Spontaneous
  Country: US (occurrence: None)
  Receive Date: 20140306
  Receipt Date: 20140306
  Transmission Date: 20141002
  Serious: Yes (Hospitalization, Other)
  Sender: FDA-Public Use
  Company Number: 163-21880-13043088

PATIENT
  Age: 80 Year
  Sex: Male

DRUGS (7)
  1. REVLIMID (LENALIDOMIDE) (10 MILLIGRAM, CAPSULES) [Suspect]
     Indication: PLASMA CELL MYELOMA
     Dosage: 10 MG, 14 IN 21 D, PO
     Route: 048
     Dates: start: 20121005
  2. JANTOVEN (WARFARIN SODIUM) (UNKNOWN) [Concomitant]
  3. BONIVA (IBANDRONATE SODIUM) (UNKNOWN) [Concomitant]
  4. PRILOSEC (OMEPRAZOLE) (UNKNOWN) [Concomitant]
  5. OXYCODONE-ACETAMINOPHEN (UNKNOWN) [Concomitant]
  6. VELCADE (BORTEZOMIB) (UNKNOWN) [Concomitant]
  7. DEXAMETHASONE (UNKNOWN) [Concomitant]

REACTIONS (3)
  - Pulmonary embolism [None]
  - Increased tendency to bruise [None]
  - Anaemia [None]
